FAERS Safety Report 8287441-X (Version None)
Quarter: 2012Q2

REPORT INFORMATION
  Report Type: 
  Country: None (occurrence: None)
  Receive Date: 20120411
  Receipt Date: 20120326
  Transmission Date: 20120825
  Serious: Yes (Hospitalization)
  Sender: FDA-Public Use
  Company Number: DSA_55837_2012

PATIENT
  Age: 70 Year
  Sex: Female

DRUGS (1)
  1. ENALAPRIL MALEATE [Suspect]
     Indication: HYPERTENSION
     Dosage: (10 MG QD, DF ORAL) ; (20 MG QD ORAL)
     Route: 048

REACTIONS (2)
  - BRONCHITIS [None]
  - HYPERTENSIVE CRISIS [None]
